FAERS Safety Report 9930621 (Version 1)
Quarter: 2014Q1

REPORT INFORMATION
  Report Type: Spontaneous
  Country: US (occurrence: US)
  Receive Date: 20140227
  Receipt Date: 20140227
  Transmission Date: 20141002
  Serious: Yes (Other)
  Sender: FDA-Public Use
  Company Number: US-B.I. PHARMACEUTICALS,INC./RIDGEFIELD-2014-BI-08156GD

PATIENT
  Sex: Female

DRUGS (2)
  1. MELOXICAM [Suspect]
     Indication: PRODUCT USED FOR UNKNOWN INDICATION
     Route: 065
  2. STATIN [Suspect]
     Indication: PRODUCT USED FOR UNKNOWN INDICATION
     Route: 065

REACTIONS (6)
  - Coeliac disease [Recovered/Resolved]
  - Colitis microscopic [Recovered/Resolved]
  - Abnormal loss of weight [Unknown]
  - Local swelling [Recovered/Resolved]
  - Gastritis [Unknown]
  - Liver function test abnormal [Recovered/Resolved]
